FAERS Safety Report 16897782 (Version 1)
Quarter: 2019Q4

REPORT INFORMATION
  Report Type: Spontaneous
  Country: US (occurrence: US)
  Receive Date: 20191009
  Receipt Date: 20191009
  Transmission Date: 20200122
  Serious: Yes (Hospitalization, Other)
  Sender: FDA-Public Use
  Company Number: US-SA-2019SA272501

PATIENT
  Sex: Female

DRUGS (1)
  1. ZANTAC 75 [Suspect]
     Active Substance: RANITIDINE HYDROCHLORIDE
     Indication: IRRITABLE BOWEL SYNDROME
     Dosage: UNK UNK, UNK

REACTIONS (5)
  - Pigmentation disorder [Unknown]
  - Intentional product misuse [Unknown]
  - Haemoglobin abnormal [Unknown]
  - Malaise [Unknown]
  - Thrombocytopenia [Unknown]
